FAERS Safety Report 14273433 (Version 3)
Quarter: 2018Q2

REPORT INFORMATION
  Report Type: Spontaneous
  Country: DE (occurrence: DE)
  Receive Date: 20171211
  Receipt Date: 20180502
  Transmission Date: 20180711
  Serious: Yes (Death)
  Sender: FDA-Public Use
  Company Number: PHHY2017DE180578

PATIENT
  Age: 31 Year
  Sex: Female

DRUGS (1)
  1. PREDNISOLONE. [Suspect]
     Active Substance: PREDNISOLONE
     Indication: ENCEPHALITIS
     Dosage: UNK (HIGH DOSE)
     Route: 065

REACTIONS (3)
  - Septic shock [Fatal]
  - Infection [Fatal]
  - Product use in unapproved indication [Unknown]
